FAERS Safety Report 23437017 (Version 1)
Quarter: 2024Q1

REPORT INFORMATION
  Report Type: Spontaneous
  Country: US (occurrence: US)
  Receive Date: 20240124
  Receipt Date: 20240124
  Transmission Date: 20240410
  Serious: Yes (Other)
  Sender: FDA-Public Use
  Company Number: US-STERISCIENCE B.V.-2024-ST-000031

PATIENT

DRUGS (9)
  1. LABETALOL [Suspect]
     Active Substance: LABETALOL\LABETALOL HYDROCHLORIDE
     Indication: Product used for unknown indication
     Dosage: THE PATIENTS MOTHER DOSE WAS 400 MG TWICE DAILY
     Route: 064
  2. LABETALOL [Suspect]
     Active Substance: LABETALOL\LABETALOL HYDROCHLORIDE
     Dosage: THE PATIENTS MOTHER DOSE WAS 600?MG EVERY 8 HOURS
     Route: 064
  3. INSULIN NOS [Suspect]
     Active Substance: INSULIN NOS
     Indication: Product used for unknown indication
     Dosage: THE PATIENTS MOTHER RECEIVED 220 UNITS/DAY
     Route: 064
  4. LISINOPRIL [Suspect]
     Active Substance: LISINOPRIL
     Indication: Product used for unknown indication
     Dosage: THE PATIENTS MOTHER DOSE WAS 10 MG/DAY
     Route: 064
  5. LISINOPRIL [Suspect]
     Active Substance: LISINOPRIL
     Dosage: THE PATIENTS MOTHER DOSE WAS 600 MG EVERY 8 HOURS
     Route: 064
  6. HYDRALAZINE [Suspect]
     Active Substance: HYDRALAZINE HYDROCHLORIDE
     Indication: Product used for unknown indication
     Dosage: THE PATIENTS MOTHER DOSE WAS 10 MG PUSHES
     Route: 064
  7. NIFEDIPINE [Suspect]
     Active Substance: NIFEDIPINE
     Indication: Product used for unknown indication
     Dosage: THE PATIENTS MOTHER DOSE WAS 30 MG/DAY
     Route: 064
  8. NIFEDIPINE [Suspect]
     Active Substance: NIFEDIPINE
     Dosage: THE PATIENTS MOTHER DOSE WAS EXTENDED RELEASE 30 MG EVERY 12 HOURS
     Route: 064
  9. POTASSIUM CHLORIDE [Suspect]
     Active Substance: POTASSIUM CHLORIDE
     Indication: Product used for unknown indication
     Dosage: THE PATIENTS MOTHER DOSE WAS 40 MEQ
     Route: 064

REACTIONS (2)
  - Premature baby [Unknown]
  - Foetal exposure during pregnancy [Unknown]
